FAERS Safety Report 21812243 (Version 1)
Quarter: 2023Q1

REPORT INFORMATION
  Report Type: Spontaneous
  Country: US (occurrence: US)
  Receive Date: 20230103
  Receipt Date: 20230103
  Transmission Date: 20230418
  Serious: Yes (Other)
  Sender: FDA-Public Use
  Company Number: US-MYLANLABS-2022M1142772

PATIENT
  Age: 24 Year
  Sex: Female

DRUGS (1)
  1. TRANEXAMIC ACID [Suspect]
     Active Substance: TRANEXAMIC ACID
     Indication: Haematoma
     Dosage: 1 GRAM
     Route: 065

REACTIONS (1)
  - Drug ineffective [Unknown]
